FAERS Safety Report 20311244 (Version 1)
Quarter: 2022Q1

REPORT INFORMATION
  Report Type: Report from Study
  Country: US (occurrence: None)
  Receive Date: 20220107
  Receipt Date: 20220107
  Transmission Date: 20220423
  Serious: Yes (Hospitalization)
  Sender: FDA-Public Use
  Company Number: US-Eisai Medical Research-EC-2022-106257

PATIENT
  Age: 76 Year
  Sex: Female

DRUGS (1)
  1. LENVIMA [Suspect]
     Active Substance: LENVATINIB
     Indication: Metastatic renal cell carcinoma
     Route: 048
     Dates: start: 202110

REACTIONS (4)
  - Cerebrovascular accident [Unknown]
  - Decreased appetite [Unknown]
  - Weight decreased [Unknown]
  - Taste disorder [Unknown]

NARRATIVE: CASE EVENT DATE: 20211001
